FAERS Safety Report 20134341 (Version 1)
Quarter: 2021Q4

REPORT INFORMATION
  Report Type: Spontaneous
  Country: CA (occurrence: CA)
  Receive Date: 20211201
  Receipt Date: 20211201
  Transmission Date: 20220303
  Serious: Yes (Hospitalization, Other)
  Sender: FDA-Public Use
  Company Number: CA-NOVARTISPH-NVSC2021CA270722

PATIENT
  Sex: Female
  Weight: 6.19 kg

DRUGS (2)
  1. TOBRADEX [Suspect]
     Active Substance: DEXAMETHASONE\TOBRAMYCIN
     Indication: Eye inflammation
     Dosage: 1.5 MG, QD
     Route: 065
  2. MAXITROL [Concomitant]
     Active Substance: DEXAMETHASONE\NEOMYCIN SULFATE\POLYMYXIN B SULFATE
     Indication: Product used for unknown indication
     Dosage: 2 DRP, QD
     Route: 065

REACTIONS (4)
  - Adrenocortical insufficiency acute [Unknown]
  - Blood corticotrophin decreased [Unknown]
  - Growth retardation [Unknown]
  - Off label use [Unknown]
